FAERS Safety Report 4825056-3 (Version None)
Quarter: 2005Q4

REPORT INFORMATION
  Report Type: 
  Country: None (occurrence: None)
  Receive Date: 20051014
  Receipt Date: 20050809
  Transmission Date: 20060501
  Serious: No
  Sender: FDA-Public Use
  Company Number: 2005SP002295

PATIENT
  Age: 60 Year
  Sex: Female

DRUGS (6)
  1. LUNESTA [Suspect]
     Dosage: 2 MG; HS; ORAL
     Route: 048
     Dates: start: 20050806, end: 20050101
  2. LEXAPRO [Concomitant]
  3. ATENOLOL [Concomitant]
  4. DYRENIUM [Concomitant]
  5. NABUMETONE [Concomitant]
  6. ACYCLOVIR [Concomitant]

REACTIONS (4)
  - DRUG INEFFECTIVE [None]
  - DYSGEUSIA [None]
  - MIDDLE INSOMNIA [None]
  - RESTLESSNESS [None]
